FAERS Safety Report 8376288-1 (Version None)
Quarter: 2012Q1

REPORT INFORMATION
  Report Type: 
  Country: None (occurrence: None)
  Receive Date: 20120323
  Receipt Date: 20110524
  Transmission Date: 20120608
  Serious: Yes (Hospitalization)
  Sender: FDA-Public Use
  Company Number: 163-21880-11053161

PATIENT
  Age: 74 Year
  Sex: Male
  Weight: 100.4 kg

DRUGS (1)
  1. REVLIMID [Suspect]
     Indication: MULTIPLE MYELOMA
     Dosage: 15 MG, DAILY X 21 DAYS, OFF 7 DAYS, PO
     Route: 048
     Dates: start: 20101001

REACTIONS (3)
  - BLINDNESS TRANSIENT [None]
  - DIARRHOEA [None]
  - DRUG DOSE OMISSION [None]
